FAERS Safety Report 15927836 (Version 3)
Quarter: 2019Q2

REPORT INFORMATION
  Report Type: Not Available
  Country: US (occurrence: US)
  Receive Date: 20190206
  Receipt Date: 20190525
  Transmission Date: 20190711
  Serious: No
  Sender: FDA-Public Use
  Company Number: US-NEUROCRINE BIOSCIENCES INC.-2019NBI00303

PATIENT
  Age: 73 Year
  Sex: Male
  Weight: 107.14 kg

DRUGS (4)
  1. TIZANIDINE. [Concomitant]
     Active Substance: TIZANIDINE
  2. INGREZZA [Suspect]
     Active Substance: VALBENAZINE
     Indication: TARDIVE DYSKINESIA
     Route: 048
     Dates: start: 20190124
  3. TRAZODONE [Concomitant]
     Active Substance: TRAZODONE HYDROCHLORIDE
  4. BENADRYL [Concomitant]
     Active Substance: DIPHENHYDRAMINE HYDROCHLORIDE
     Indication: INSOMNIA

REACTIONS (5)
  - Asthenia [Recovering/Resolving]
  - Neuropathy peripheral [Unknown]
  - Fall [Unknown]
  - Balance disorder [Unknown]
  - Muscular weakness [Not Recovered/Not Resolved]

NARRATIVE: CASE EVENT DATE: 2019
